FAERS Safety Report 6231280-8 (Version None)
Quarter: 2009Q2

REPORT INFORMATION
  Report Type: 
  Country: None (occurrence: None)
  Receive Date: 20090611
  Receipt Date: 20090602
  Transmission Date: 20091009
  Serious: Yes (Death)
  Sender: FDA-Public Use
  Company Number: JP-WYE-H01809807

PATIENT
  Age: 63 Year
  Sex: Female

DRUGS (21)
  1. MYLOTARG [Suspect]
     Indication: ACUTE MYELOID LEUKAEMIA
     Dosage: 9 MG/M^2 1X PER Q DAY INTRAVENOUS DRIP;
     Route: 041
     Dates: start: 20061106, end: 20061106
  2. MYLOTARG [Suspect]
     Indication: ACUTE MYELOID LEUKAEMIA
     Dosage: 9 MG/M^2 1X PER Q DAY INTRAVENOUS DRIP;
     Route: 041
     Dates: start: 20061127, end: 20061127
  3. MAXIPIME [Concomitant]
  4. FUNGUARD (MICAFUNGIN SODIUM) [Concomitant]
  5. KYTRIL [Concomitant]
  6. ORGARAN [Concomitant]
  7. METHYCOBAL (MECOBALAMIN) [Concomitant]
  8. MUCOSTA (REBAMIPIDE) [Concomitant]
  9. ZOLPIDEM TARTRATE [Concomitant]
  10. OMEPRAZOLE [Concomitant]
  11. NEUQUINON (UBIDECARENONE) [Concomitant]
  12. FUNGIZONE 9AMPHOTERICIN B) [Concomitant]
  13. HEPARIN SODIUM [Concomitant]
  14. OMEGACIN (BIAPENEM) [Concomitant]
  15. VANCOMYCIN [Concomitant]
  16. PAZUCROSS (PAZUFLOXACIN MESILATE) [Concomitant]
  17. TARGOCID [Concomitant]
  18. MORPHINE [Concomitant]
  19. CLINDAMYCIN HCL [Concomitant]
  20. CYTARABINE [Concomitant]
  21. FOY (GABEXATE MESILATE) [Concomitant]

REACTIONS (20)
  - ASPARTATE AMINOTRANSFERASE INCREASED [None]
  - BLOOD BILIRUBIN INCREASED [None]
  - BLOOD FIBRINOGEN INCREASED [None]
  - BLOOD LACTATE DEHYDROGENASE INCREASED [None]
  - BLOOD POTASSIUM DECREASED [None]
  - CONDITION AGGRAVATED [None]
  - FEBRILE NEUTROPENIA [None]
  - FIBRIN DEGRADATION PRODUCTS INCREASED [None]
  - FUNGAEMIA [None]
  - GAMMA-GLUTAMYLTRANSFERASE INCREASED [None]
  - HAEMATOCRIT DECREASED [None]
  - HAEMOGLOBIN DECREASED [None]
  - NAUSEA [None]
  - OEDEMA [None]
  - PAIN [None]
  - PANCREATITIS [None]
  - PLATELET COUNT DECREASED [None]
  - RED BLOOD CELL COUNT DECREASED [None]
  - SEPTIC SHOCK [None]
  - WHITE BLOOD CELL COUNT DECREASED [None]
